FAERS Safety Report 25071014 (Version 4)
Quarter: 2025Q2

REPORT INFORMATION
  Report Type: Spontaneous
  Country: US (occurrence: US)
  Receive Date: 20250312
  Receipt Date: 20250611
  Transmission Date: 20250717
  Serious: No
  Sender: Kenvue
  Company Number: US-KENVUE-20250205565

PATIENT
  Age: 33 Year
  Sex: Female

DRUGS (1)
  1. WOMENS ROGAINE UNSCENTED [Suspect]
     Active Substance: MINOXIDIL
     Indication: Product used for unknown indication
     Dosage: DOSE: LITTLE BIT PRODUCT, ONCE A DAY, PRODUCT USED FOR ALMOST 2 MONTHS
     Route: 061
     Dates: start: 202408, end: 2024

REACTIONS (6)
  - Application site acne [Unknown]
  - Application site irritation [Recovering/Resolving]
  - Application site vesicles [Recovering/Resolving]
  - Application site pruritus [Unknown]
  - Application site pain [Unknown]
  - Incorrect dose administered [Unknown]

NARRATIVE: CASE EVENT DATE: 20240101
